FAERS Safety Report 8549611-2 (Version None)
Quarter: 2012Q3

REPORT INFORMATION
  Report Type: 
  Country: None (occurrence: None)
  Receive Date: 20120730
  Receipt Date: 20120112
  Transmission Date: 20120928
  Serious: Yes (Death)
  Sender: FDA-Public Use
  Company Number: US-ROCHE-1092972

PATIENT
  Sex: Male

DRUGS (13)
  1. PULMICORT [Concomitant]
  2. COREG CR [Concomitant]
  3. XOPENEX [Concomitant]
  4. PREDNISONE [Concomitant]
  5. THEO-DUR [Concomitant]
  6. ACTOS [Concomitant]
     Indication: TYPE 2 DIABETES MELLITUS
  7. XOLAIR [Suspect]
     Indication: ASTHMA
  8. SPIRIVA [Concomitant]
  9. ACCOLATE [Concomitant]
  10. FUROSEMIDE [Concomitant]
  11. SYMBICORT [Concomitant]
     Dosage: 160/4.5
  12. DUONEB [Concomitant]
  13. MAXAIR [Concomitant]

REACTIONS (1)
  - DEATH [None]
